FAERS Safety Report 4846093-9 (Version None)
Quarter: 2005Q4

REPORT INFORMATION
  Report Type: 
  Country: None (occurrence: None)
  Receive Date: 20051130
  Receipt Date: 20051118
  Transmission Date: 20060501
  Serious: Yes (Other)
  Sender: FDA-Public Use
  Company Number: 2005158496

PATIENT
  Sex: Female

DRUGS (1)
  1. TIKOSYN [Suspect]
     Indication: ATRIAL FIBRILLATION
     Dosage: 0.5 MG (0.25 MG, BID INTERVAL: EVERY DAY), ORAL
     Route: 048
     Dates: start: 20050201, end: 20051101

REACTIONS (3)
  - ALOPECIA [None]
  - CARDIAC PACEMAKER INSERTION [None]
  - SKIN EXFOLIATION [None]
